FAERS Safety Report 5582056-6 (Version None)
Quarter: 2007Q4

REPORT INFORMATION
  Report Type: 
  Country: None (occurrence: None)
  Receive Date: 20071130
  Receipt Date: 20070608
  Transmission Date: 20080405
  Serious: Yes (Other)
  Sender: FDA-Public Use
  Company Number: WAES 0706USA01653

PATIENT
  Age: 69 Year
  Sex: Female

DRUGS (5)
  1. FOSAMAX [Suspect]
     Indication: OSTEOPOROSIS
     Dosage: 70 MG/WKY/PO
     Route: 048
     Dates: start: 20050201, end: 20070408
  2. CELEXA [Concomitant]
  3. FLONASE [Concomitant]
  4. PROTONIX [Concomitant]
  5. ZYRTEC [Concomitant]

REACTIONS (1)
  - OSTEONECROSIS [None]
